FAERS Safety Report 9822037 (Version 1)
Quarter: 2014Q1

REPORT INFORMATION
  Report Type: Spontaneous
  Country: FR (occurrence: FR)
  Receive Date: 20140116
  Receipt Date: 20140116
  Transmission Date: 20141002
  Serious: Yes (Hospitalization, Disabling)
  Sender: FDA-Public Use
  Company Number: FR-009507513-1401FRA003322

PATIENT
  Age: 77 Year
  Sex: Male
  Weight: 79 kg

DRUGS (6)
  1. ZOCOR 20MG [Suspect]
     Indication: ATHEROSCLEROSIS PROPHYLAXIS
     Dosage: 1 DF, QD
     Route: 048
     Dates: end: 20131212
  2. DIGOXIN [Concomitant]
     Dosage: 1 DF, QD
  3. PREVISCAN [Concomitant]
     Dosage: 0.5 DF, QD
  4. JOSIR LP [Concomitant]
     Dosage: 0.4 MG, QD
  5. TOCO [Concomitant]
     Dosage: 500 MG, QD
  6. DUPHALAC [Concomitant]
     Dosage: 2 DF, QD

REACTIONS (1)
  - Tendon rupture [Not Recovered/Not Resolved]
